FAERS Safety Report 7555804-3 (Version None)
Quarter: 2011Q2

REPORT INFORMATION
  Report Type: 
  Country: None (occurrence: None)
  Receive Date: 20110618
  Receipt Date: 20110606
  Transmission Date: 20111010
  Serious: Yes (Death, Hospitalization, Other)
  Sender: FDA-Public Use
  Company Number: US-BAYER-201041713NA

PATIENT
  Age: 79 Year
  Sex: Male
  Weight: 69 kg

DRUGS (22)
  1. ACETYLSALICYLIC ACID SRT [Concomitant]
     Dosage: 1 DAILY
     Route: 048
  2. PLATELETS [Concomitant]
     Dosage: 6 UNITS
     Route: 042
     Dates: start: 19950305
  3. RED BLOOD CELLS [Concomitant]
     Dosage: UNK
     Dates: start: 19950307
  4. HEPARIN [Concomitant]
     Dosage: 5000 UNIT BOLUS THEN 1000 UNITS/HOUR
     Route: 042
     Dates: start: 19950223
  5. NITRO-DUR [Concomitant]
     Dosage: 0.4 IN THE MORNING, LONG TERM
     Route: 061
  6. VANCOMYCIN [Concomitant]
     Dosage: 1 GM
     Route: 042
     Dates: start: 19950227
  7. ATIVAN [Concomitant]
     Dosage: 5 MG
     Route: 048
     Dates: start: 19950227
  8. FRESH FROZEN PLASMA [Concomitant]
     Dosage: 2 UNITS
     Dates: start: 19950227
  9. PLATELETS [Concomitant]
     Dosage: 18 UNITS
     Dates: start: 19950227
  10. RED BLOOD CELLS [Concomitant]
     Dosage: UNK
     Dates: start: 19950227
  11. DOPAMINE HCL [Concomitant]
     Dosage: 400 MICROGRAMS /MIN
     Route: 042
     Dates: start: 19950227
  12. MORPHINE [Concomitant]
     Dosage: 5 MG
     Route: 058
     Dates: start: 19950227
  13. ATROVENT [Concomitant]
     Dosage: 2 PUFFS 4 TIMES A DAY, LONG TERM USE
  14. ATIVAN [Concomitant]
     Dosage: UNK
     Route: 042
     Dates: start: 19950303
  15. DOBUTAMINE HCL [Concomitant]
     Dosage: 300 MICROGRAMS /MINUTE
     Route: 042
     Dates: start: 19950227, end: 19950307
  16. ISORDIL [Concomitant]
     Dosage: 10 MG THREE TIMES A DAY
     Route: 048
     Dates: start: 19950221
  17. VASOPRESSIN [Concomitant]
     Dosage: 20 UNITS
     Route: 042
     Dates: start: 19950227, end: 19950227
  18. TRASYLOL [Suspect]
     Indication: CAROTID ENDARTERECTOMY
     Dosage: CONTINUED TO SURGICAL INTENSIVE CARE
     Route: 042
     Dates: start: 19950227, end: 19950228
  19. TRASYLOL [Suspect]
     Indication: CORONARY ARTERY BYPASS
  20. HEPARIN [Concomitant]
     Dosage: UNK
     Route: 042
     Dates: start: 19950227
  21. PROCARDIA [Concomitant]
     Dosage: 30 MG DAILY, LONG TERM
     Route: 048
  22. NITROGLYCERIN [Concomitant]
     Dosage: 50 MICROGRAMS/MINUTE
     Route: 042
     Dates: start: 19950227

REACTIONS (12)
  - RENAL IMPAIRMENT [None]
  - STRESS [None]
  - DEATH [None]
  - UNEVALUABLE EVENT [None]
  - MULTI-ORGAN FAILURE [None]
  - PAIN [None]
  - INJURY [None]
  - EMOTIONAL DISTRESS [None]
  - RENAL INJURY [None]
  - RENAL FAILURE [None]
  - ANXIETY [None]
  - FEAR [None]
